FAERS Safety Report 9290630 (Version 1)
Quarter: 2013Q2

REPORT INFORMATION
  Report Type: Spontaneous
  Country: US (occurrence: US)
  Receive Date: 20130515
  Receipt Date: 20130515
  Transmission Date: 20140414
  Serious: Yes (Hospitalization)
  Sender: FDA-Public Use
  Company Number: US-INCYTE CORPORATION-2013IN000700

PATIENT
  Age: 44 Year
  Sex: Male
  Weight: 113.8 kg

DRUGS (7)
  1. JAKAFI [Suspect]
     Indication: POLYCYTHAEMIA VERA
     Dosage: 20 MG, BID
     Route: 048
     Dates: start: 20121115, end: 20121225
  2. XANAX [Concomitant]
     Dosage: 1 MG, TID
     Route: 048
  3. PROZAC [Concomitant]
     Dosage: 20 MG, QD
     Route: 048
  4. ZESTORETIC [Concomitant]
     Dosage: 20-12.5 MG QD
     Route: 048
  5. MS CONTIN [Concomitant]
     Dosage: 30 MG 4 TABS EVERY 12 HOURS
     Route: 048
  6. ROXICODONE [Concomitant]
     Dosage: 5 MG 2-5 TABS EVERY 4 HOURS
     Route: 048
  7. DESYREL [Concomitant]
     Dosage: 150 MG, HS, PRN

REACTIONS (2)
  - Abnormal behaviour [Recovered/Resolved]
  - Back pain [Recovered/Resolved]
